FAERS Safety Report 7394872-9 (Version None)
Quarter: 2011Q2

REPORT INFORMATION
  Report Type: 
  Country: None (occurrence: None)
  Receive Date: 20110405
  Receipt Date: 20110328
  Transmission Date: 20111010
  Serious: Yes (Hospitalization)
  Sender: FDA-Public Use
  Company Number: A0921313A

PATIENT
  Age: 42 Year
  Sex: Female
  Weight: 144 kg

DRUGS (14)
  1. NEXIUM [Concomitant]
     Dosage: 40MG TWICE PER DAY
  2. SYNTHROID [Concomitant]
     Dosage: 75MCG PER DAY
  3. ZOLOFT [Concomitant]
     Dosage: 50MGD PER DAY
  4. MULTI-VITAMIN [Concomitant]
     Dosage: 1TAB PER DAY
     Route: 048
  5. ACETAMINOPHEN [Concomitant]
  6. LASIX [Concomitant]
     Dosage: 80MG TWICE PER DAY
  7. KDUR [Concomitant]
     Dosage: 40MEQ TWICE PER DAY
  8. GABAPENTIN [Concomitant]
     Dosage: 100MG THREE TIMES PER DAY
  9. METOLAZONE [Concomitant]
     Dosage: 2.5MG AS REQUIRED
  10. FLOLAN [Suspect]
     Indication: PULMONARY HYPERTENSION
     Route: 042
     Dates: start: 20050323
  11. FLOLAN [Suspect]
     Indication: PULMONARY HYPERTENSION
     Dosage: 23NGKM UNKNOWN
     Route: 042
     Dates: start: 20050323
  12. DIGOXIN [Concomitant]
     Dosage: 125MCG PER DAY
  13. ALDACTONE [Concomitant]
     Dosage: 50MG TWICE PER DAY
  14. NORVASC [Concomitant]
     Dosage: 5MG TWICE PER DAY

REACTIONS (1)
  - LUNG INFECTION [None]
